FAERS Safety Report 6435001-5 (Version None)
Quarter: 2009Q4

REPORT INFORMATION
  Report Type: 
  Country: None (occurrence: None)
  Receive Date: 20091110
  Receipt Date: 20091028
  Transmission Date: 20100525
  Serious: Yes (Hospitalization, Other)
  Sender: FDA-Public Use
  Company Number: PHHY2009FI42380

PATIENT
  Age: 55 Year
  Sex: Female

DRUGS (4)
  1. TRILEPTAL [Suspect]
     Indication: EPILEPSY
     Dosage: 300 MG, BID
     Dates: start: 20090928
  2. LINATIL [Concomitant]
     Indication: HYPERTENSION
     Dosage: 5 MG, QD
  3. LIPCUT [Concomitant]
     Indication: HYPERCHOLESTEROLAEMIA
     Dosage: 20 MG, QD
  4. ANALGESICS [Concomitant]

REACTIONS (11)
  - ARRHYTHMIA [None]
  - CONCUSSION [None]
  - DIZZINESS [None]
  - EAR PAIN [None]
  - FALL [None]
  - LIP PAIN [None]
  - LOSS OF CONSCIOUSNESS [None]
  - NAUSEA [None]
  - PAIN IN EXTREMITY [None]
  - VOMITING [None]
  - WOUND [None]
